FAERS Safety Report 25215429 (Version 1)
Quarter: 2025Q2

REPORT INFORMATION
  Report Type: Spontaneous
  Country: PL (occurrence: PL)
  Receive Date: 20250418
  Receipt Date: 20250418
  Transmission Date: 20250717
  Serious: Yes (Life-Threatening, Hospitalization, Other)
  Sender: MYLAN
  Company Number: None

PATIENT
  Age: 24 Year
  Sex: Male

DRUGS (3)
  1. XANAX [Interacting]
     Active Substance: ALPRAZOLAM
     Indication: Alcohol use disorder
     Dates: start: 20241222, end: 20241223
  2. CANNABIS SATIVA SUBSP. INDICA TOP [Interacting]
     Active Substance: CANNABIS SATIVA SUBSP. INDICA TOP
     Indication: Alcohol use disorder
     Dates: start: 20241222, end: 20241223
  3. ALCOHOL [Interacting]
     Active Substance: ALCOHOL
     Indication: Product used for unknown indication

REACTIONS (4)
  - Loss of consciousness [Recovered/Resolved]
  - Cannabis interaction [Recovered/Resolved]
  - Alcohol interaction [Recovered/Resolved]
  - Drug abuse [Unknown]
